FAERS Safety Report 8726512 (Version 2)
Quarter: 2012Q4

REPORT INFORMATION
  Report Type: 
  Country: AT (occurrence: AT)
  Receive Date: 20120816
  Receipt Date: 20121011
  Transmission Date: 20130627
  Serious: Yes (Hospitalization, Other)
  Sender: FDA-Public Use
  Company Number: AT-CELGENEUS-009-21660-12080583

PATIENT
  Age: 53 Year
  Sex: Female

DRUGS (5)
  1. ABRAXANE [Suspect]
     Indication: OVARIAN CANCER
     Route: 041
     Dates: start: 20120615
  2. ABRAXANE [Suspect]
     Route: 041
     Dates: start: 20120727
  3. CARBOPLATIN [Concomitant]
     Indication: OVARIAN CANCER
     Route: 065
  4. XANAX [Concomitant]
     Indication: ANXIETY
     Route: 065
  5. HYDAL [Concomitant]
     Indication: ABDOMINAL PAIN
     Route: 065

REACTIONS (3)
  - Aortic thrombosis [Recovered/Resolved]
  - Abdominal abscess [Unknown]
  - Pyrexia [Recovered/Resolved]
